FAERS Safety Report 17572860 (Version 1)
Quarter: 2020Q1

REPORT INFORMATION
  Report Type: Spontaneous
  Country: CH (occurrence: CH)
  Receive Date: 20200323
  Receipt Date: 20200323
  Transmission Date: 20200409
  Serious: Yes (Death, Life-Threatening, Hospitalization, Other)
  Sender: FDA-Public Use
  Company Number: CH-009507513-2003CHE006879

PATIENT
  Sex: Female

DRUGS (7)
  1. BACTRIM [Suspect]
     Active Substance: SULFAMETHOXAZOLE\TRIMETHOPRIM
     Indication: ANTIFUNGAL PROPHYLAXIS
     Dosage: DOSE 800/160 MG
     Route: 048
     Dates: start: 20200108, end: 20200203
  2. PRAZINE [PROMAZINE HYDROCHLORIDE] [Suspect]
     Active Substance: PROMAZINE HYDROCHLORIDE
     Dosage: 100 MILLIGRAM, QD
     Route: 048
     Dates: start: 202001, end: 202002
  3. PANTOPRAZOL SANDOZ [Suspect]
     Active Substance: PANTOPRAZOLE SODIUM
     Dosage: 20 MILLIGRAM, QD
     Route: 048
     Dates: start: 202001, end: 202002
  4. REMERON [Suspect]
     Active Substance: MIRTAZAPINE
     Dosage: 30 MILLIGRAM, QD
     Route: 048
     Dates: start: 202001, end: 202002
  5. FORTECORTIN [Suspect]
     Active Substance: DEXAMETHASONE
     Dosage: 12 MILLIGRAM, QD
     Route: 048
     Dates: start: 202001, end: 202002
  6. CALCIMAGON [Concomitant]
     Active Substance: CALCIUM
     Dosage: 1 DOSAGE FORM = 1000 MG / 800 IE
     Route: 048
     Dates: start: 202001, end: 202002
  7. TEMODAL [Suspect]
     Active Substance: TEMOZOLOMIDE
     Indication: GLIOBLASTOMA
     Dosage: 120 MILLIGRAM, QD
     Route: 048
     Dates: start: 20200108, end: 20200203

REACTIONS (4)
  - Pancytopenia [Fatal]
  - Aplastic anaemia [Fatal]
  - Necrotising fasciitis [Fatal]
  - Septic shock [Fatal]

NARRATIVE: CASE EVENT DATE: 202002
